FAERS Safety Report 5013570-X (Version None)
Quarter: 2006Q2

REPORT INFORMATION
  Report Type: 
  Country: None (occurrence: None)
  Receive Date: 20060530
  Receipt Date: 20060522
  Transmission Date: 20061013
  Serious: Yes (Hospitalization)
  Sender: FDA-Public Use
  Company Number: 2006AC00978

PATIENT
  Age: 52 Year
  Sex: Female

DRUGS (3)
  1. OMEPRAZOLE [Suspect]
     Route: 048
  2. LOVASTATIN [Concomitant]
     Indication: HYPERCHOLESTEROLAEMIA
  3. RANITIDINE [Concomitant]
     Indication: HIATUS HERNIA
     Dosage: STOPPED WHEN THE PATIENT BEGAN OMEPRAZOLE

REACTIONS (2)
  - SKIN HYPERPIGMENTATION [None]
  - SKIN LESION [None]
